FAERS Safety Report 9334088 (Version 1)
Quarter: 2013Q2

REPORT INFORMATION
  Report Type: Spontaneous
  Country: US (occurrence: US)
  Receive Date: 20130606
  Receipt Date: 20130606
  Transmission Date: 20140414
  Serious: No
  Sender: FDA-Public Use
  Company Number: US-AMGEN-USASP2013010666

PATIENT
  Age: 79 Year
  Sex: Female

DRUGS (11)
  1. PROLIA [Suspect]
     Indication: OSTEOPOROSIS POSTMENOPAUSAL
     Dosage: UNK
     Dates: start: 20120516
  2. PROLIA [Suspect]
     Dosage: UNK
     Dates: start: 20120516
  3. QUINAPRIL [Concomitant]
  4. SPIRONOLACTONE [Concomitant]
  5. CRESTOR [Concomitant]
  6. SYNTHROID [Concomitant]
  7. PREVACID [Concomitant]
  8. ZYRTEC [Concomitant]
  9. METOPROLOL [Concomitant]
  10. VITAMINS /90003601/ [Concomitant]
  11. FLUTICASONE                        /00972202/ [Concomitant]

REACTIONS (2)
  - Sinusitis [Unknown]
  - Immunoglobulins decreased [Unknown]
